FAERS Safety Report 5487520-6 (Version None)
Quarter: 2007Q4

REPORT INFORMATION
  Report Type: 
  Country: None (occurrence: None)
  Receive Date: 20071016
  Receipt Date: 20071004
  Transmission Date: 20080405
  Serious: Yes (Disabling, Other)
  Sender: FDA-Public Use
  Company Number: GB-PFIZER INC-2007084410

PATIENT
  Age: 60 Year
  Sex: Male
  Weight: 100 kg

DRUGS (10)
  1. CHAMPIX [Suspect]
     Indication: SMOKING CESSATION THERAPY
     Dosage: TEXT:1MG
     Route: 048
  2. MERIDIA [Concomitant]
     Indication: WEIGHT DECREASED
     Dates: start: 20070910
  3. ACETYLSALICYLIC ACID [Concomitant]
     Route: 048
  4. ATENOLOL [Concomitant]
     Indication: HYPERTENSION
     Route: 048
  5. ATORVASTATIN CALCIUM [Concomitant]
     Indication: DIABETES MELLITUS
     Route: 048
  6. BEZAFIBRATE [Concomitant]
     Indication: HYPERLIPIDAEMIA
     Route: 048
  7. DILTIAZEM [Concomitant]
     Indication: HYPERTENSION
     Route: 048
  8. ISOSORBIDE MONONITRATE [Concomitant]
     Indication: ANGINA PECTORIS
     Route: 048
  9. METFORMIN HCL [Concomitant]
     Indication: DIABETES MELLITUS
     Route: 048
  10. OMEPRAZOLE [Concomitant]
     Route: 048

REACTIONS (1)
  - BLOOD GLUCOSE FLUCTUATION [None]
